FAERS Safety Report 8339404-3 (Version None)
Quarter: 2012Q2

REPORT INFORMATION
  Report Type: 
  Country: None (occurrence: None)
  Receive Date: 20120507
  Receipt Date: 20120430
  Transmission Date: 20120825
  Serious: Yes (Hospitalization)
  Sender: FDA-Public Use
  Company Number: BE-B.I. PHARMACEUTICALS,INC./RIDGEFIELD-2012-BL-00223BL

PATIENT
  Sex: Female
  Weight: 70 kg

DRUGS (7)
  1. RASILEZ [Concomitant]
  2. BISOPROLOL FUMARATE [Concomitant]
  3. OMEPRAZOLE [Concomitant]
  4. PRADAXA [Suspect]
     Indication: ATRIAL FIBRILLATION
     Dosage: 220 MG
  5. FUROSEMIDE [Concomitant]
  6. ALLOPURINOL [Concomitant]
  7. RAMIPRIL [Concomitant]

REACTIONS (3)
  - FALL [None]
  - FEMUR FRACTURE [None]
  - HAEMATOMA [None]
